FAERS Safety Report 6194833-1 (Version None)
Quarter: 2009Q2

REPORT INFORMATION
  Report Type: 
  Country: None (occurrence: None)
  Receive Date: 20090515
  Receipt Date: 20090515
  Transmission Date: 20091009
  Serious: Yes (Hospitalization)
  Sender: FDA-Public Use
  Company Number: None

PATIENT
  Sex: Male
  Weight: 78.9 kg

DRUGS (10)
  1. DOCETAXEL [Suspect]
     Indication: NON-SMALL CELL LUNG CANCER
     Dosage: 35 MG/M2 ON DAY 1,8,15
     Route: 003
     Dates: start: 20090417, end: 20090424
  2. AVASTIN [Suspect]
     Indication: NON-SMALL CELL LUNG CANCER
     Dosage: 10 MG/KG ON DAYS 1 + 15
     Dates: start: 20090417, end: 20090424
  3. LIPITOR [Concomitant]
  4. METOPROLOL SUCCINATE [Concomitant]
  5. LASIX [Concomitant]
  6. METFORMIN HCL [Concomitant]
  7. ASPIRIN [Concomitant]
  8. TRIHEXYPHENADRYL [Concomitant]
  9. PENTOXIFYLLINE [Concomitant]
  10. GLIMEPIRIDE [Concomitant]

REACTIONS (2)
  - DIARRHOEA [None]
  - FATIGUE [None]
